FAERS Safety Report 12402695 (Version 4)
Quarter: 2017Q2

REPORT INFORMATION
  Report Type: Spontaneous
  Country: US (occurrence: US)
  Receive Date: 20160525
  Receipt Date: 20170530
  Transmission Date: 20170830
  Serious: Yes (Other)
  Sender: FDA-Public Use
  Company Number: US-SA-2016SA067421

PATIENT
  Sex: Male

DRUGS (11)
  1. ZETIA [Concomitant]
     Active Substance: EZETIMIBE
  2. WELCHOL [Concomitant]
     Active Substance: COLESEVELAM HYDROCHLORIDE
  3. LANTUS SOLOSTAR [Suspect]
     Active Substance: INSULIN GLARGINE
     Indication: DIABETES MELLITUS
     Dosage: DOSE:10 UNIT(S)
     Route: 051
     Dates: start: 2006
  4. HUMALOG [Concomitant]
     Active Substance: INSULIN LISPRO
     Dosage: DOSE:10 UNIT(S)
  5. GLYBURIDE. [Suspect]
     Active Substance: GLYBURIDE
     Route: 048
  6. GLUCOPHAGE [Concomitant]
     Active Substance: METFORMIN HYDROCHLORIDE
  7. LANTUS SOLOSTAR [Suspect]
     Active Substance: INSULIN GLARGINE
     Indication: DIABETES MELLITUS
     Dosage: DOSE:50 UNIT(S)
     Route: 051
     Dates: end: 201609
  8. SOLOSTAR [Concomitant]
     Active Substance: DEVICE
  9. GLIPIZIDE. [Concomitant]
     Active Substance: GLIPIZIDE
  10. AVANDIA [Concomitant]
     Active Substance: ROSIGLITAZONE MALEATE
  11. JANUMET [Concomitant]
     Active Substance: METFORMIN HYDROCHLORIDE\SITAGLIPTIN PHOSPHATE

REACTIONS (9)
  - Drug ineffective [Unknown]
  - Hepatic cirrhosis [Unknown]
  - Off label use [Unknown]
  - Fatigue [Unknown]
  - Pain [Unknown]
  - Injection site pain [Unknown]
  - Gastric disorder [Unknown]
  - Constipation [Unknown]
  - Blood glucose increased [Unknown]

NARRATIVE: CASE EVENT DATE: 2009
